FAERS Safety Report 9740428 (Version 1)
Quarter: 2013Q4

REPORT INFORMATION
  Report Type: Spontaneous
  Country: US (occurrence: US)
  Receive Date: 20131209
  Receipt Date: 20131209
  Transmission Date: 20140711
  Serious: No
  Sender: FDA-Public Use
  Company Number: US-009507513-1311USA010338

PATIENT
  Age: 18 Year
  Sex: Female
  Weight: 136 kg

DRUGS (1)
  1. NEXPLANON [Suspect]
     Indication: CONTRACEPTION
     Dosage: UNK
     Route: 059
     Dates: start: 20131016, end: 20131122

REACTIONS (9)
  - Device breakage [Unknown]
  - Device difficult to use [Unknown]
  - Malaise [Unknown]
  - Device expulsion [Unknown]
  - Product quality issue [Unknown]
  - Vaginal haemorrhage [Unknown]
  - Menstruation irregular [Recovering/Resolving]
  - Nausea [Unknown]
  - Medical device complication [Unknown]
